FAERS Safety Report 9851869 (Version 3)
Quarter: 2014Q1

REPORT INFORMATION
  Report Type: Spontaneous
  Country: JP (occurrence: JP)
  Receive Date: 20140129
  Receipt Date: 20140226
  Transmission Date: 20141002
  Serious: Yes (Other)
  Sender: FDA-Public Use
  Company Number: JP-009507513-1401JPN012476

PATIENT
  Age: 40 Year
  Sex: Male

DRUGS (2)
  1. GASTER [Suspect]
     Dosage: 40 MG DAILY
     Route: 048
     Dates: start: 20131227, end: 20140123
  2. EPOETIN [Concomitant]
     Dosage: UNKNOWN
     Route: 048

REACTIONS (2)
  - Red blood cell count decreased [Recovered/Resolved]
  - Prescribed overdose [Unknown]
